FAERS Safety Report 11707107 (Version 2)
Quarter: 2015Q4

REPORT INFORMATION
  Report Type: Spontaneous
  Country: US (occurrence: US)
  Receive Date: 20151106
  Receipt Date: 20151117
  Transmission Date: 20160304
  Serious: Yes (Life-Threatening, Hospitalization, Congenital Anomaly, Other)
  Sender: FDA-Public Use
  Company Number: US-PFIZER INC-2015374844

PATIENT
  Age: 1 Year
  Sex: Male
  Weight: 2.99 kg

DRUGS (5)
  1. ABILIFY [Suspect]
     Active Substance: ARIPIPRAZOLE
     Dosage: UNK, DAILY
     Route: 064
     Dates: end: 20100727
  2. ZOLOFT [Suspect]
     Active Substance: SERTRALINE HYDROCHLORIDE
     Indication: DEPRESSION
     Dosage: UNK, DAILY
     Route: 064
     Dates: end: 20100727
  3. KLONOPIN [Suspect]
     Active Substance: CLONAZEPAM
     Indication: ANXIETY
     Dosage: UNK, DAILY
     Route: 064
     Dates: end: 20100727
  4. SUBOXONE [Suspect]
     Active Substance: BUPRENORPHINE HYDROCHLORIDE\NALOXONE HYDROCHLORIDE
     Indication: DRUG DEPENDENCE
     Dosage: 12 MG, 2X/DAY
     Route: 064
     Dates: start: 2009, end: 2010
  5. BUPRENORPHINE. [Suspect]
     Active Substance: BUPRENORPHINE
     Indication: DRUG DEPENDENCE
     Dosage: 12 MG, 2X/DAY
     Route: 064
     Dates: start: 2010, end: 20100727

REACTIONS (8)
  - Heart rate abnormal [Unknown]
  - Weight fluctuation [Recovered/Resolved]
  - Drug withdrawal syndrome neonatal [Recovered/Resolved]
  - Maternal exposure during pregnancy [Unknown]
  - Tongue disorder [Recovered/Resolved]
  - Aggression [Unknown]
  - Head banging [Unknown]
  - Speech disorder [Unknown]

NARRATIVE: CASE EVENT DATE: 2010
